FAERS Safety Report 11892407 (Version 2)
Quarter: 2016Q1

REPORT INFORMATION
  Report Type: Spontaneous
  Country: US (occurrence: US)
  Receive Date: 20160106
  Receipt Date: 20160127
  Transmission Date: 20160526
  Serious: Yes (Other)
  Sender: FDA-Public Use
  Company Number: US-ENDO PHARMACEUTICALS INC.-2015-005203

PATIENT
  Age: 35 Year
  Sex: Female
  Weight: 68.1 kg

DRUGS (7)
  1. ALBUTEROL. [Concomitant]
     Active Substance: ALBUTEROL
     Indication: ASTHMA
     Route: 065
  2. PREDNISONE TABLETS [Suspect]
     Active Substance: PREDNISONE
     Indication: BACK DISORDER
     Route: 065
     Dates: start: 20151210, end: 20151211
  3. NASONEX [Concomitant]
     Active Substance: MOMETASONE FUROATE
     Indication: HYPERSENSITIVITY
     Route: 065
  4. SINGULAIR [Concomitant]
     Active Substance: MONTELUKAST SODIUM
     Indication: HYPERSENSITIVITY
     Route: 065
  5. PREVNAR 13 [Suspect]
     Active Substance: PNEUMOCOCCAL 13-VALENT CONJUGATE VACCINE
     Indication: ASTHMA
     Route: 065
     Dates: start: 20151210, end: 20151210
  6. DULERA [Concomitant]
     Active Substance: FORMOTEROL FUMARATE DIHYDRATE\MOMETASONE FUROATE
     Indication: ASTHMA
     Dosage: 200/5
     Route: 065
  7. LOESTRIN NOS [Concomitant]
     Active Substance: ETHINYL ESTRADIOL\NORETHINDRONE ACETATE
     Indication: ORAL CONTRACEPTION
     Dosage: 1-20
     Route: 065

REACTIONS (6)
  - Thyroid gland abscess [Unknown]
  - Thyroid mass [Unknown]
  - Thyroid function test abnormal [Unknown]
  - Malaise [Unknown]
  - Weight decreased [Unknown]
  - Immune system disorder [Recovered/Resolved]

NARRATIVE: CASE EVENT DATE: 20151211
